FAERS Safety Report 11396864 (Version 2)
Quarter: 2015Q3

REPORT INFORMATION
  Report Type: Spontaneous
  Country: US (occurrence: US)
  Receive Date: 20150819
  Receipt Date: 20150908
  Transmission Date: 20151125
  Serious: No
  Sender: FDA-Public Use
  Company Number: US-BAYER-2015-392682

PATIENT
  Age: 62 Year
  Sex: Female

DRUGS (2)
  1. FINACEA [Suspect]
     Active Substance: AZELAIC ACID
     Indication: ROSACEA
     Dosage: UNK
     Route: 061
     Dates: start: 201505
  2. FINACEA [Suspect]
     Active Substance: AZELAIC ACID
     Indication: ROSACEA
     Dosage: 15 %, UNK
     Route: 061
     Dates: start: 201506

REACTIONS (5)
  - Rash papular [Not Recovered/Not Resolved]
  - Skin exfoliation [Recovering/Resolving]
  - Skin disorder [None]
  - Application site erythema [Not Recovered/Not Resolved]
  - Application site irritation [Not Recovered/Not Resolved]

NARRATIVE: CASE EVENT DATE: 201506
